FAERS Safety Report 6728083-4 (Version None)
Quarter: 2010Q2

REPORT INFORMATION
  Report Type: 
  Country: None (occurrence: None)
  Receive Date: 20100517
  Receipt Date: 20100507
  Transmission Date: 20101027
  Serious: Yes (Other)
  Sender: FDA-Public Use
  Company Number: GXKR2010GB05164

PATIENT
  Age: 42 Year
  Sex: Female

DRUGS (1)
  1. METHYLPREDNISOLONE 4MG TAB [Suspect]
     Indication: MULTIPLE SCLEROSIS RELAPSE
     Dosage: 500 MG/DAY (THREE 5-DAY COURSES)
     Route: 048
     Dates: start: 20071001

REACTIONS (7)
  - ARTHRALGIA [None]
  - BONE INFARCTION [None]
  - HYPOAESTHESIA [None]
  - MYALGIA [None]
  - OSTEONECROSIS [None]
  - SURGERY [None]
  - WALKING AID USER [None]
